FAERS Safety Report 7579484-6 (Version None)
Quarter: 2011Q2

REPORT INFORMATION
  Report Type: 
  Country: None (occurrence: None)
  Receive Date: 20110629
  Receipt Date: 20101220
  Transmission Date: 20111010
  Serious: Yes (Death, Hospitalization, Other)
  Sender: FDA-Public Use
  Company Number: US-BAYER-200939966NA

PATIENT
  Age: 64 Year
  Sex: Female
  Weight: 86.168 kg

DRUGS (26)
  1. DITROPAN XL [Concomitant]
     Indication: BLADDER DISORDER
     Dosage: 5 MG, QD
     Route: 048
  2. NOREPINEPHRINE BITARTRATE [Concomitant]
     Dosage: UNK
     Route: 042
     Dates: start: 20060629, end: 20060629
  3. MILRINONE [Concomitant]
     Dosage: 2 MG, UNK
     Route: 042
     Dates: start: 20060629, end: 20060629
  4. PHENYLEPHRINE HCL [Concomitant]
     Dosage: UNK
     Route: 042
     Dates: start: 20060629, end: 20060629
  5. ZETIA [Concomitant]
     Indication: BLOOD CHOLESTEROL ABNORMAL
     Dosage: 10 MG, QD
     Route: 048
  6. INSULIN [Concomitant]
     Dosage: 4 UNITS / 2 UNITS
     Route: 042
     Dates: start: 20060629, end: 20060629
  7. HEPARIN [Concomitant]
     Dosage: 3000 U, UNK
     Route: 042
     Dates: start: 20060629, end: 20060629
  8. LIDOCAINE [Concomitant]
     Dosage: 200 MG, UNK
     Route: 042
     Dates: start: 20060629, end: 20060629
  9. MIDAZOLAM HCL [Concomitant]
     Dosage: 2 MG, UNK
     Route: 042
     Dates: start: 20060629
  10. VANCOMYCIN [Concomitant]
     Dosage: 1 G, UNK
     Route: 042
     Dates: start: 20060629
  11. INDERAL [Concomitant]
     Indication: BLOOD PRESSURE ABNORMAL
     Dosage: 60 MG, QD
     Route: 048
  12. NICARDIPINE HCL [Concomitant]
     Dosage: 200 MG X2
     Route: 042
     Dates: start: 20060629
  13. CRYOPRECIPITATES [Concomitant]
     Dosage: 8 U, UNK
     Dates: start: 20060629
  14. TRASYLOL [Suspect]
     Dosage: 100ML FOLLOWED BY CONTINUOUS INFUSION AT 50ML/HOUR
     Dates: end: 20060629
  15. MANNITOL [Concomitant]
     Dosage: 25 G, UNK
     Route: 042
     Dates: start: 20060629, end: 20060629
  16. NITROGLYCERIN [Concomitant]
     Dosage: 200 MEQ, UNK
     Route: 042
     Dates: start: 20060629
  17. PLATELETS [Concomitant]
     Dosage: 16 U, UNK
     Dates: start: 20060629
  18. ROCURONIUM BROMIDE [Concomitant]
     Dosage: 100 MG, UNK
     Route: 042
     Dates: start: 20060629, end: 20060629
  19. ACTOS [Concomitant]
     Indication: DIABETES MELLITUS
     Dosage: 15 MG, QD
     Route: 048
  20. HYDROCORTISONE [Concomitant]
     Dosage: 100 MG, UNK
     Route: 042
     Dates: start: 20060629, end: 20060629
  21. TRASYLOL [Suspect]
     Indication: AORTIC VALVE REPLACEMENT
     Dosage: 1 ML TEST DOSE
     Route: 042
     Dates: start: 20060629
  22. PROPOFOL [Concomitant]
     Dosage: UNK
     Route: 042
     Dates: start: 20060629, end: 20060629
  23. ETOMIDATE [Concomitant]
     Dosage: 16 MG, UNK
     Route: 042
     Dates: start: 20060629, end: 20060629
  24. ESMOLOL [Concomitant]
     Dosage: 50 MG, UNK
     Route: 042
     Dates: start: 20060629, end: 20060629
  25. PROTAMINE SULFATE [Concomitant]
     Dosage: 250 MG, UNK
     Route: 042
     Dates: start: 20060629, end: 20060629
  26. RED BLOOD CELLS [Concomitant]
     Dosage: 1 U, UNK
     Dates: start: 20060629

REACTIONS (7)
  - DEATH [None]
  - RENAL FAILURE ACUTE [None]
  - INJURY [None]
  - UNEVALUABLE EVENT [None]
  - EMOTIONAL DISTRESS [None]
  - RENAL FAILURE [None]
  - PAIN [None]
